FAERS Safety Report 25284204 (Version 1)
Quarter: 2025Q2

REPORT INFORMATION
  Report Type: Spontaneous
  Country: US (occurrence: None)
  Receive Date: 20250508
  Receipt Date: 20250508
  Transmission Date: 20250716
  Serious: Yes (Hospitalization)
  Sender: FDA-CTU
  Company Number: None

PATIENT
  Age: 69 Year
  Sex: Male
  Weight: 80.55 kg

DRUGS (23)
  1. CYCLOSPORINE [Suspect]
     Active Substance: CYCLOSPORINE
     Indication: Lung transplant
     Dosage: 25 MG TWICE A DAY ORAL ?
     Route: 048
     Dates: start: 20240108
  2. CYCLOSPORINE [Suspect]
     Active Substance: CYCLOSPORINE
     Indication: Lung transplant
     Dosage: 100 MG TWICE A DAY ORAL
     Route: 048
     Dates: start: 20231122
  3. MYCOPHENOLIC ACID [Concomitant]
     Active Substance: MYCOPHENOLIC ACID
     Dates: start: 20230509, end: 20250325
  4. MYCOPHENOLIC ACID [Concomitant]
     Active Substance: MYCOPHENOLIC ACID
     Dates: start: 20240814, end: 20250325
  5. LOKELMA [Concomitant]
     Active Substance: SODIUM ZIRCONIUM CYCLOSILICATE
     Dates: start: 20250325, end: 20250507
  6. AZITHROMYCIN ANHYDROUS [Concomitant]
     Active Substance: AZITHROMYCIN ANHYDROUS
     Dates: start: 20250325
  7. Cresemba 186 mg tablet [Concomitant]
     Dates: start: 20250325
  8. cetirizine 10 mg tablet [Concomitant]
     Dates: start: 20240212
  9. sulfamethoxazole/trimethoprim 800 mg/160 mg tablet [Concomitant]
     Dates: start: 20230202
  10. trospium 20 mg tablet [Concomitant]
     Dates: start: 20230830
  11. MIRTAZAPINE [Concomitant]
     Active Substance: MIRTAZAPINE
     Dates: start: 20250325
  12. valganciclovir 450 mg tablet [Concomitant]
     Dates: start: 20230202
  13. AMLODIPINE [Concomitant]
     Active Substance: AMLODIPINE BESYLATE
     Dates: start: 20230202, end: 20250424
  14. VENLAFAXINE HYDROCHLORIDE [Concomitant]
     Active Substance: VENLAFAXINE HYDROCHLORIDE
     Dates: start: 20231012
  15. MG plus protein 133 mg tablet [Concomitant]
     Dates: start: 20230705
  16. PANTOPRAZOLE [Concomitant]
     Active Substance: PANTOPRAZOLE
     Dates: start: 20230807
  17. metoprolol ER succinate 25 mg tablet [Concomitant]
     Dates: start: 20230417
  18. TAMSULOSIN HYDROCHLORIDE [Concomitant]
     Active Substance: TAMSULOSIN HYDROCHLORIDE
     Dates: start: 20230202
  19. PREDNISONE [Concomitant]
     Active Substance: PREDNISONE
     Dates: start: 20230209
  20. calcium with vitamin D3 (600-800 mg) tablet [Concomitant]
     Dates: start: 20230222, end: 20250324
  21. zinc sulfate 220 mg tablet [Concomitant]
     Dates: start: 20240430
  22. ARIPIPRAZOLE [Concomitant]
     Active Substance: ARIPIPRAZOLE
     Dates: start: 20250325, end: 20250505
  23. Mag-oxide 400 mg [Concomitant]
     Dates: start: 20230202, end: 20250325

REACTIONS (2)
  - Clostridium difficile infection [None]
  - Lung transplant [None]

NARRATIVE: CASE EVENT DATE: 20250427
